FAERS Safety Report 20379609 (Version 1)
Quarter: 2022Q1

REPORT INFORMATION
  Report Type: Spontaneous
  Country: US (occurrence: None)
  Receive Date: 20220126
  Receipt Date: 20220126
  Transmission Date: 20220423
  Serious: Yes (unspecified)
  Sender: FDA-Public Use
  Company Number: None

PATIENT
  Age: 35 Year
  Sex: Female

DRUGS (11)
  1. SOTROVIMAB [Suspect]
     Active Substance: SOTROVIMAB
     Indication: COVID-19
     Dosage: OTHER FREQUENCY : ONCE;?
     Route: 042
     Dates: start: 20220125, end: 20220125
  2. benzonatate (Tessalon Perles) 100 mg capsule [Concomitant]
  3. busPIRone (BUSPAR) 10 mg tablet [Concomitant]
  4. ceTIRIzine (ZyrTEC) 10 mg tablet, Premedication for IVIG treatment [Concomitant]
  5. clonazePAM (KlonoPIN) 1 mg tablet (C-IV), PRN [Concomitant]
  6. diphenhydrAMINE (BENADRYL) 50 mg capsule, PRN [Concomitant]
  7. estradioL (ESTRACE) 1 mg tablet [Concomitant]
  8. famotidine (PEPCID) 20 mg tablet [Concomitant]
  9. immune globulin, human, (GAMMAGARD) infusion, every 28 days [Concomitant]
  10. predniSONE (DELTASONE) 10 mg tablet, PRN [Concomitant]
  11. oxyCODONE-acetaminophen (PERCOCET) 5-325 mg per tablet (C-II), PRN [Concomitant]

REACTIONS (3)
  - Administration related reaction [None]
  - Angioedema [None]
  - Dyspnoea [None]

NARRATIVE: CASE EVENT DATE: 20220125
